FAERS Safety Report 7998147-6 (Version None)
Quarter: 2011Q4

REPORT INFORMATION
  Report Type: 
  Country: None (occurrence: None)
  Receive Date: 20111221
  Receipt Date: 20110228
  Transmission Date: 20120403
  Serious: No
  Sender: FDA-Public Use
  Company Number: US-GLAXOSMITHKLINE-A0917015A

PATIENT
  Age: 65 Year
  Sex: Female
  Weight: 81.4 kg

DRUGS (23)
  1. ZOLOFT [Concomitant]
     Indication: DEPRESSION
  2. ATENOLOL [Concomitant]
     Indication: CARDIAC DISORDER
     Dosage: 50MG PER DAY
  3. TRAMADOL HCL [Suspect]
     Indication: BACK PAIN
     Route: 065
  4. SPIRONOLACTONE [Concomitant]
  5. ISOSORBIDE MONONITRATE [Concomitant]
     Indication: CARDIAC DISORDER
  6. FUROSEMIDE [Concomitant]
     Indication: OEDEMA PERIPHERAL
  7. MULTI-VITAMINS [Concomitant]
  8. CALCIUM [Concomitant]
  9. ZYRTEC [Concomitant]
     Indication: HYPERSENSITIVITY
  10. COZAAR [Concomitant]
  11. SIMVASTATIN [Concomitant]
     Indication: BLOOD CHOLESTEROL INCREASED
  12. NEURONTIN [Suspect]
     Indication: NEUROPATHY PERIPHERAL
     Route: 048
  13. FENOFIBRATE [Concomitant]
     Indication: BLOOD CHOLESTEROL INCREASED
  14. DETROL LA [Suspect]
     Indication: URINARY INCONTINENCE
     Route: 048
  15. METHOCARBAMOL [Concomitant]
     Indication: MUSCLE DISORDER
  16. OMEPRAZOLE [Concomitant]
     Indication: GASTRITIS EROSIVE
  17. SERTRALINE HYDROCHLORIDE [Concomitant]
     Dosage: 50MG PER DAY
  18. SYNTHROID [Concomitant]
     Indication: THYROIDITIS
  19. OMACOR [Suspect]
     Indication: BLOOD CHOLESTEROL ABNORMAL
     Route: 048
  20. LYSINE [Concomitant]
     Indication: ORAL HERPES
  21. OXYBUTYNIN [Concomitant]
  22. PLAVIX [Concomitant]
     Indication: BLOOD DISORDER
     Dosage: 75MG PER DAY
  23. ACETYLSALICYLIC ACID SRT [Concomitant]
     Indication: CARDIAC DISORDER

REACTIONS (1)
  - BENIGN COLONIC NEOPLASM [None]
